FAERS Safety Report 9409642 (Version 2)
Quarter: 2013Q3

REPORT INFORMATION
  Report Type: Spontaneous
  Country: US (occurrence: None)
  Receive Date: 20130605
  Receipt Date: 20130703
  Transmission Date: 20140515
  Serious: Yes (Hospitalization, Other)
  Sender: FDA-Public Use
  Company Number: 2013P1006445

PATIENT
  Age: 78 Year
  Sex: Female
  Weight: 65.77 kg

DRUGS (1)
  1. COLLAGENASE SANTYL [Suspect]
     Indication: WOUND
     Route: 061
     Dates: start: 201304, end: 201304

REACTIONS (6)
  - Wound infection [None]
  - Impaired healing [None]
  - Osteomyelitis [None]
  - Leg amputation [None]
  - Gastrointestinal tube insertion [None]
  - Drug administered at inappropriate site [None]
